FAERS Safety Report 22958272 (Version 2)
Quarter: 2024Q1

REPORT INFORMATION
  Report Type: Spontaneous
  Country: US (occurrence: US)
  Receive Date: 20230919
  Receipt Date: 20240103
  Transmission Date: 20240410
  Serious: No
  Sender: FDA-Public Use
  Company Number: US-OPELLA-2023OHG006962

PATIENT
  Sex: Male

DRUGS (1)
  1. ICY HOT WITH LIDOCAINE NO-MESS [Suspect]
     Active Substance: LIDOCAINE\MENTHOL
     Dosage: DOSAGE STRENGTH:6,27 G; 9,12 G/57 G
     Route: 065

REACTIONS (2)
  - Drug ineffective [Unknown]
  - No adverse event [Unknown]
